FAERS Safety Report 14101404 (Version 1)
Quarter: 2017Q4

REPORT INFORMATION
  Report Type: Spontaneous
  Country: US (occurrence: US)
  Receive Date: 20171018
  Receipt Date: 20171018
  Transmission Date: 20180321
  Serious: Yes (Other)
  Sender: FDA-Public Use
  Company Number: US-PFIZER INC-2017441883

PATIENT
  Age: 64 Year
  Sex: Male
  Weight: 104.31 kg

DRUGS (5)
  1. VITAMIN B2 [Suspect]
     Active Substance: RIBOFLAVIN
     Indication: PAIN
  2. VITAMIN B2 [Suspect]
     Active Substance: RIBOFLAVIN
     Indication: DYSPEPSIA
     Dosage: UNK
     Dates: start: 2013, end: 201612
  3. PROTONIX [Suspect]
     Active Substance: PANTOPRAZOLE SODIUM
     Indication: GASTROINTESTINAL HAEMORRHAGE
     Dosage: UNK
     Dates: start: 2015
  4. VITAMIN B2 [Suspect]
     Active Substance: RIBOFLAVIN
     Indication: GLAUCOMA
  5. PROTONIX [Suspect]
     Active Substance: PANTOPRAZOLE SODIUM
     Dosage: 40 MG, 2X/DAY (EVERY 12 HOURS)
     Route: 048
     Dates: start: 201404

REACTIONS (13)
  - Limb injury [Unknown]
  - Weight decreased [Unknown]
  - Anxiety [Unknown]
  - Chills [Unknown]
  - Nasopharyngitis [Unknown]
  - Drug screen positive [Recovered/Resolved]
  - Joint swelling [Unknown]
  - Anger [Unknown]
  - Nausea [Unknown]
  - Hyperhidrosis [Unknown]
  - Frustration tolerance decreased [Unknown]
  - Pain [Unknown]
  - Feeding disorder [Unknown]

NARRATIVE: CASE EVENT DATE: 2014
